FAERS Safety Report 7578615-1 (Version None)
Quarter: 2011Q2

REPORT INFORMATION
  Report Type: 
  Country: None (occurrence: None)
  Receive Date: 20110628
  Receipt Date: 20110620
  Transmission Date: 20111010
  Serious: Yes (Other)
  Sender: FDA-Public Use
  Company Number: US-ASTRAZENECA-2011SE12657

PATIENT
  Age: 65 Year
  Sex: Female

DRUGS (4)
  1. ATACAND HCT [Suspect]
     Route: 048
  2. NEXIUM [Suspect]
     Route: 048
  3. TOPROL-XL [Suspect]
     Route: 048
  4. ATACAND [Suspect]
     Route: 048

REACTIONS (2)
  - NASOPHARYNGITIS [None]
  - MYOCARDIAL INFARCTION [None]
